FAERS Safety Report 25904060 (Version 1)
Quarter: 2025Q4

REPORT INFORMATION
  Report Type: Spontaneous
  Country: EU (occurrence: EU)
  Receive Date: 20251010
  Receipt Date: 20251010
  Transmission Date: 20260118
  Serious: Yes (Hospitalization)
  Sender: EMD SERONO INC
  Company Number: EU-Merck Healthcare KGaA-2025050010

PATIENT
  Sex: Male
  Weight: 47 kg

DRUGS (3)
  1. SAIZEN [Suspect]
     Active Substance: SOMATROPIN
     Indication: Growth retardation
     Dosage: SAIZEN 8 MG/ML, SOLUTION FOR INJECTION IN CARTRIDGE
  2. SAIZEN [Suspect]
     Active Substance: SOMATROPIN
     Indication: Insulin-like growth factor increased
  3. COLCHICINE [Suspect]
     Active Substance: COLCHICINE
     Indication: Product used for unknown indication

REACTIONS (4)
  - Hospitalisation [Unknown]
  - Headache [Unknown]
  - Off label use [Unknown]
  - Device use error [Unknown]
